FAERS Safety Report 6965759-8 (Version None)
Quarter: 2010Q3

REPORT INFORMATION
  Report Type: 
  Country: None (occurrence: None)
  Receive Date: 20100903
  Receipt Date: 20100827
  Transmission Date: 20110219
  Serious: Yes (Other)
  Sender: FDA-Public Use
  Company Number: GB-MERCK-1009GBR00001

PATIENT
  Age: 67 Year
  Sex: Female

DRUGS (5)
  1. FOSAMAX [Suspect]
     Route: 048
  2. MYCOPHENOLATE MOFETIL [Suspect]
     Route: 048
     Dates: start: 20080101
  3. AMITRIPTYLINE HYDROCHLORIDE [Concomitant]
     Route: 048
  4. GABAPENTIN [Concomitant]
     Route: 048
  5. MYCOPHENOLATE MOFETIL [Suspect]
     Route: 048

REACTIONS (4)
  - DRUG ADMINISTRATION ERROR [None]
  - DYSPHAGIA [None]
  - OESOPHAGEAL ULCER [None]
  - STOMATITIS [None]
